FAERS Safety Report 8019221-4 (Version None)
Quarter: 2012Q1

REPORT INFORMATION
  Report Type: 
  Country: None (occurrence: None)
  Receive Date: 20120103
  Receipt Date: 20111228
  Transmission Date: 20120608
  Serious: Yes (Death, Hospitalization)
  Sender: FDA-Public Use
  Company Number: FR-BRISTOL-MYERS SQUIBB COMPANY-16321606

PATIENT
  Age: 86 Year
  Sex: Male

DRUGS (6)
  1. REPAGLINIDE [Concomitant]
     Dates: start: 20091101
  2. AMLODIPINE BESYLATE [Concomitant]
     Dates: start: 20090901
  3. GLUCOPHAGE [Concomitant]
     Dates: start: 20090901
  4. ASPEGIC 325 [Suspect]
     Dosage: POWDER FOR ORAL SOLUTION,LONG STANDING TREATMENT
     Route: 048
     Dates: start: 20090901, end: 20111103
  5. CORVASAL [Concomitant]
     Dates: start: 20110531
  6. CAPTOPRIL [Suspect]
     Dosage: 1 DF: 1 UNIT,2YEARS,LONG STANDING TREATMENT
     Route: 048
     Dates: start: 20090901

REACTIONS (8)
  - HAEMORRHAGIC STROKE [None]
  - VENTRICULAR EXTRASYSTOLES [None]
  - SEPTIC SHOCK [None]
  - RESPIRATORY ARREST [None]
  - SEPSIS [None]
  - PNEUMONIA [None]
  - BRONCHIAL OBSTRUCTION [None]
  - CARDIOMEGALY [None]
